FAERS Safety Report 6025768-2 (Version None)
Quarter: 2008Q4

REPORT INFORMATION
  Report Type: 
  Country: None (occurrence: None)
  Receive Date: 20081224
  Receipt Date: 20081217
  Transmission Date: 20090506
  Serious: Yes (Other)
  Sender: FDA-Public Use
  Company Number: GXKR2008US12066

PATIENT
  Age: 12 Year
  Sex: Female

DRUGS (22)
  1. ETOPOSIDE [Suspect]
     Indication: EWING'S SARCOMA
     Dosage: ORAL
     Route: 048
  2. ETOPOSIDE [Suspect]
     Indication: NEOPLASM PROGRESSION
     Dosage: ORAL
     Route: 048
  3. DOXORUBICIN HCL [Suspect]
     Indication: EWING'S SARCOMA
  4. VINCRISTINE [Suspect]
     Indication: EWING'S SARCOMA
  5. IRINOTECAN (NGX) (IRINOTECAN) [Suspect]
     Indication: EWING'S SARCOMA
  6. IRINOTECAN (NGX) (IRINOTECAN) [Suspect]
     Indication: NEOPLASM PROGRESSION
  7. VINBLASTINE (NGX) (VINBLASTINE SULFATE) [Suspect]
     Indication: EWING'S SARCOMA
  8. VINBLASTINE (NGX) (VINBLASTINE SULFATE) [Suspect]
     Indication: NEOPLASM PROGRESSION
  9. CARBOPLATIN [Suspect]
     Indication: EWING'S SARCOMA
  10. FLUDARABINE (NGX) (FLUDARABINE) [Suspect]
     Indication: EWING'S SARCOMA
  11. FLUDARABINE (NGX) (FLUDARABINE) [Suspect]
     Indication: NEOPLASM PROGRESSION
  12. IFOSFAMIDE [Suspect]
     Indication: EWING'S SARCOMA
  13. CYCLOPHOSPHAMIDE [Suspect]
     Indication: EWING'S SARCOMA
  14. CYCLOPHOSPHAMIDE [Suspect]
     Indication: NEOPLASM PROGRESSION
  15. TOPOTECAN (TOPOTECAN) [Suspect]
     Indication: EWING'S SARCOMA
  16. TOPOTECAN (TOPOTECAN) [Suspect]
     Indication: NEOPLASM PROGRESSION
  17. GEFITINIB (GEFITINIB) [Suspect]
     Indication: EWING'S SARCOMA
  18. GEFITINIB (GEFITINIB) [Suspect]
     Indication: NEOPLASM PROGRESSION
  19. MELPHALAN (MELPHALAN) [Suspect]
     Indication: EWING'S SARCOMA
  20. MELPHALAN (MELPHALAN) [Suspect]
     Indication: NEOPLASM PROGRESSION
  21. THIOTEPA [Suspect]
     Indication: EWING'S SARCOMA
  22. THIOTEPA [Suspect]
     Indication: NEOPLASM PROGRESSION

REACTIONS (6)
  - AREFLEXIA [None]
  - ARTHROPATHY [None]
  - AXONAL NEUROPATHY [None]
  - MOTOR DYSFUNCTION [None]
  - NEOPLASM PROGRESSION [None]
  - STEM CELL TRANSPLANT [None]
